FAERS Safety Report 10895454 (Version 1)
Quarter: 2015Q1

REPORT INFORMATION
  Report Type: Spontaneous
  Country: US (occurrence: US)
  Receive Date: 20150307
  Receipt Date: 20150307
  Transmission Date: 20150721
  Serious: Yes (Hospitalization, Disabling, Other)
  Sender: FDA-Public Use
  Company Number: US-AMGEN-USASP2015020342

PATIENT
  Age: 53 Year
  Sex: Female

DRUGS (2)
  1. ENBREL [Suspect]
     Active Substance: ETANERCEPT
     Indication: RHEUMATOID ARTHRITIS
     Dosage: 50 MG, QWK
     Route: 065
     Dates: start: 2008
  2. SYNVISC [Suspect]
     Active Substance: HYALURONATE SODIUM
     Indication: PRODUCT USED FOR UNKNOWN INDICATION
     Dosage: UNK
     Route: 065

REACTIONS (25)
  - Musculoskeletal pain [Recovered/Resolved]
  - Disability [Not Recovered/Not Resolved]
  - Arthralgia [Recovered/Resolved]
  - Pain [Recovered/Resolved]
  - Inflammation [Unknown]
  - Feeling abnormal [Recovered/Resolved]
  - Diabetes mellitus [Not Recovered/Not Resolved]
  - Drug hypersensitivity [Recovered/Resolved]
  - Cataract [Recovered/Resolved]
  - Hepatic cirrhosis [Recovered/Resolved]
  - Carcinoid tumour of the duodenum [Recovered/Resolved]
  - Myositis [Unknown]
  - Exostosis [Recovered/Resolved]
  - Joint swelling [Unknown]
  - Chondritis [Unknown]
  - Non-alcoholic steatohepatitis [Recovered/Resolved]
  - Arthropathy [Recovered/Resolved]
  - Anaemia [Not Recovered/Not Resolved]
  - Hepatomegaly [Recovered/Resolved]
  - Duodenal ulcer [Recovered/Resolved]
  - Peripheral swelling [Recovered/Resolved]
  - Dysstasia [Not Recovered/Not Resolved]
  - Feeling hot [Unknown]
  - Splenomegaly [Recovered/Resolved]
  - Carcinoid tumour [Recovered/Resolved]

NARRATIVE: CASE EVENT DATE: 2008
